FAERS Safety Report 10480183 (Version 2)
Quarter: 2014Q3

REPORT INFORMATION
  Report Type: Report from Study
  Country: US (occurrence: US)
  Receive Date: 20140929
  Receipt Date: 20140929
  Transmission Date: 20150326
  Serious: Yes (Hospitalization)
  Sender: FDA-Public Use
  Company Number: US-BRISTOL-MYERS SQUIBB COMPANY-21411962

PATIENT
  Age: 22 Year
  Sex: Female
  Weight: 69.7 kg

DRUGS (12)
  1. CEPHALEXIN. [Concomitant]
     Active Substance: CEPHALEXIN
  2. MYCOPHENOLIC ACID [Concomitant]
     Active Substance: MYCOPHENOLIC ACID
  3. PENTAMIDINE [Concomitant]
     Active Substance: PENTAMIDINE
  4. BELATACEPT [Suspect]
     Active Substance: BELATACEPT
     Indication: RENAL TRANSPLANT
     Route: 042
     Dates: start: 20140718
  5. CALCITRIOL. [Concomitant]
     Active Substance: CALCITRIOL
  6. TACROLIMUS. [Suspect]
     Active Substance: TACROLIMUS
     Indication: RENAL TRANSPLANT
  7. ALEMTUZUMAB [Suspect]
     Active Substance: ALEMTUZUMAB
     Indication: RENAL TRANSPLANT
  8. ANTI-THYMOCYTE GLOBULIN (RABBIT) NOS [Suspect]
     Active Substance: LAPINE T-LYMPHOCYTE IMMUNE GLOBULIN
     Indication: RENAL TRANSPLANT
  9. POTASSIUM PHOSPHATE+ SODIUM PHOSPHATE [Concomitant]
  10. VALGANCICLOVIR [Concomitant]
     Active Substance: VALGANCICLOVIR
  11. MYCOPHENOLATE MOFETIL. [Suspect]
     Active Substance: MYCOPHENOLATE MOFETIL
     Indication: RENAL TRANSPLANT
  12. MYCOPHENOLATE SODIUM [Suspect]
     Active Substance: MYCOPHENOLATE SODIUM
     Indication: RENAL TRANSPLANT

REACTIONS (2)
  - Pyrexia [Recovered/Resolved]
  - Cyst [Unknown]

NARRATIVE: CASE EVENT DATE: 20140913
